FAERS Safety Report 8914120 (Version 2)
Quarter: 2012Q4

REPORT INFORMATION
  Report Type: 
  Country: NL (occurrence: NL)
  Receive Date: 20121119
  Receipt Date: 20121217
  Transmission Date: 20130627
  Serious: Yes (Hospitalization)
  Sender: FDA-Public Use
  Company Number: NL-AMGEN-NLDSP2012073273

PATIENT
  Age: 59 Year
  Sex: Female
  Weight: 70 kg

DRUGS (5)
  1. NEULASTA [Suspect]
     Indication: PRODUCT USED FOR UNKNOWN INDICATION
     Dosage: UNK
     Dates: start: 20121101
  2. OLANZAPINE [Concomitant]
     Dosage: UNK
  3. EMEND                              /01627301/ [Concomitant]
     Dosage: UNK
  4. ETOPOSIDE [Concomitant]
     Indication: NEOPLASM MALIGNANT
     Dosage: 180 mg, Idd
     Route: 042
     Dates: start: 20121029
  5. CISPLATIN [Concomitant]
     Indication: NEOPLASM MALIGNANT
     Dosage: 141 mg, Idd
     Route: 042
     Dates: start: 20121029, end: 20121029

REACTIONS (1)
  - Febrile neutropenia [Recovered/Resolved]
